FAERS Safety Report 8618510-X (Version None)
Quarter: 2012Q3

REPORT INFORMATION
  Report Type: 
  Country: None (occurrence: None)
  Receive Date: 20120824
  Receipt Date: 20120810
  Transmission Date: 20120928
  Serious: Yes (Other)
  Sender: FDA-Public Use
  Company Number: DE-RANBAXY-2012R1-59152

PATIENT
  Age: 5 Month

DRUGS (4)
  1. ZIDOVUDINE [Suspect]
     Indication: ANTIRETROVIRAL THERAPY
     Dosage: 180 MG/M2, BID
     Route: 065
  2. LOPINAVIR AND RITONAVIR [Suspect]
     Indication: ANTIRETROVIRAL THERAPY
     Dosage: 300 MG/M2, BID
     Route: 065
  3. LAMIVUDINE [Suspect]
     Indication: ANTIRETROVIRAL THERAPY
     Dosage: 4 MG/KG BID
     Route: 065
  4. NEVIRAPINE [Suspect]
     Indication: ANTIRETROVIRAL THERAPY
     Dosage: 200  MG/M2, BID
     Route: 065

REACTIONS (2)
  - IMMUNE RECONSTITUTION SYNDROME [None]
  - NEPHROTIC SYNDROME [None]
